FAERS Safety Report 6834209-4 (Version None)
Quarter: 2010Q3

REPORT INFORMATION
  Report Type: 
  Country: None (occurrence: None)
  Receive Date: 20100712
  Receipt Date: 20081013
  Transmission Date: 20110219
  Serious: No
  Sender: FDA-Public Use
  Company Number: US-PFIZER INC-2007028075

PATIENT
  Sex: Female
  Weight: 81.19 kg

DRUGS (3)
  1. CHANTIX [Suspect]
     Indication: SMOKING CESSATION THERAPY
     Route: 048
     Dates: end: 20070901
  2. XANAX [Suspect]
  3. LORTAB [Concomitant]

REACTIONS (6)
  - DEPRESSION [None]
  - DYSGEUSIA [None]
  - HEADACHE [None]
  - LIVER FUNCTION TEST ABNORMAL [None]
  - OEDEMA PERIPHERAL [None]
  - STRESS [None]
